FAERS Safety Report 14242861 (Version 1)
Quarter: 2017Q4

REPORT INFORMATION
  Report Type: Spontaneous
  Country: DE (occurrence: DE)
  Receive Date: 20171201
  Receipt Date: 20171201
  Transmission Date: 20180321
  Serious: Yes (Other)
  Sender: FDA-Public Use
  Company Number: DE-009507513-0503DEU00044

PATIENT
  Age: 39 Year
  Sex: Male

DRUGS (7)
  1. EZETROL 10 MG TABLETTEN [Suspect]
     Active Substance: EZETIMIBE
     Indication: TYPE IIA HYPERLIPIDAEMIA
     Dosage: UNK
     Route: 048
     Dates: start: 20040617, end: 20040714
  2. BEZAFIBRATE [Concomitant]
     Active Substance: BEZAFIBRATE
     Dosage: UNK MG, UNK
     Route: 048
     Dates: start: 20040617, end: 20040714
  3. EZETROL 10 MG TABLETTEN [Suspect]
     Active Substance: EZETIMIBE
     Indication: DEVICE OCCLUSION
     Dosage: DAILY DOSE: 10 MG MILLGRAM(S) EVERY DAY
     Route: 048
     Dates: start: 20040728, end: 20041216
  4. RAMIPRIL. [Concomitant]
     Active Substance: RAMIPRIL
     Route: 048
  5. METOPROLOL. [Concomitant]
     Active Substance: METOPROLOL
     Dosage: 100 MG, QD
     Route: 048
  6. ASPIRIN. [Concomitant]
     Active Substance: ASPIRIN
     Dosage: 100 MG, QD
     Route: 048
  7. CLOPIDOGREL [Concomitant]
     Active Substance: CLOPIDOGREL BISULFATE
     Dosage: UNK MG, UNK
     Route: 048
     Dates: end: 200312

REACTIONS (3)
  - Hepatic enzyme increased [Unknown]
  - Hepatic steatosis [Unknown]
  - Blood creatine increased [Recovering/Resolving]

NARRATIVE: CASE EVENT DATE: 20040714
